FAERS Safety Report 4497549-2 (Version None)
Quarter: 2004Q4

REPORT INFORMATION
  Report Type: 
  Country: None (occurrence: None)
  Receive Date: 20041104
  Receipt Date: 20041025
  Transmission Date: 20050328
  Serious: Yes (Hospitalization)
  Sender: FDA-Public Use
  Company Number: CIP04002282

PATIENT
  Age: 82 Year
  Sex: Female

DRUGS (5)
  1. BENET (RISEDRONATE SODIUM) TABLET, 2.5 MG [Suspect]
     Indication: OSTEOPOROSIS
     Dosage: 2.5 MG DAILY, ORAL
     Route: 048
     Dates: start: 20040514, end: 20041018
  2. PLETAL [Suspect]
  3. BLOPRESS (CANDESARTAN CILEXETIL) [Concomitant]
  4. SELBEX (TEPRENONE) [Concomitant]
  5. ALFAROL (ALFACALCIDOL) [Concomitant]

REACTIONS (3)
  - COUGH [None]
  - INTERSTITIAL LUNG DISEASE [None]
  - PYREXIA [None]
